FAERS Safety Report 23662924 (Version 1)
Quarter: 2024Q1

REPORT INFORMATION
  Report Type: Spontaneous
  Country: GB (occurrence: GB)
  Receive Date: 20240322
  Receipt Date: 20240322
  Transmission Date: 20240409
  Serious: Yes (Disabling)
  Sender: FDA-Public Use
  Company Number: None

PATIENT
  Age: 20 Year
  Sex: Female

DRUGS (1)
  1. ESCITALOPRAM [Suspect]
     Active Substance: ESCITALOPRAM OXALATE
     Indication: Depression
     Dosage: UNKNOWN
     Route: 065

REACTIONS (4)
  - Sexual dysfunction [Not Recovered/Not Resolved]
  - Neurosis [Unknown]
  - Delusional disorder, unspecified type [Unknown]
  - Therapy cessation [Unknown]
